FAERS Safety Report 8581632-6 (Version None)
Quarter: 2012Q3

REPORT INFORMATION
  Report Type: 
  Country: None (occurrence: None)
  Receive Date: 20120809
  Receipt Date: 20120803
  Transmission Date: 20120928
  Serious: No
  Sender: FDA-Public Use
  Company Number: US-B.I. PHARMACEUTICALS,INC./RIDGEFIELD-2012-BP-17552BP

PATIENT
  Age: 81 Year
  Sex: Female

DRUGS (3)
  1. ALBUTEROL [Concomitant]
     Indication: EMPHYSEMA
     Route: 055
     Dates: start: 20110101
  2. OXYGEN [Concomitant]
     Indication: EMPHYSEMA
  3. SPIRIVA [Suspect]
     Indication: EMPHYSEMA
     Dosage: 18 MCG
     Route: 055
     Dates: start: 20120201

REACTIONS (3)
  - OCULAR HYPERAEMIA [None]
  - VISION BLURRED [None]
  - COUGH [None]
